FAERS Safety Report 9291212 (Version 1)
Quarter: 2013Q2

REPORT INFORMATION
  Report Type: Report from Study
  Country: CN (occurrence: CN)
  Receive Date: 20130515
  Receipt Date: 20130515
  Transmission Date: 20140414
  Serious: Yes (Hospitalization)
  Sender: FDA-Public Use
  Company Number: CN-BRISTOL-MYERS SQUIBB COMPANY-18872333

PATIENT
  Age: 63 Year
  Sex: Male
  Weight: 52 kg

DRUGS (4)
  1. CISPLATIN [Suspect]
     Indication: NON-SMALL CELL LUNG CANCER STAGE III
     Dosage: DAY 1,22 AND 43.?PRIOR TO EVENT DOSE:24SEP12?5 DAYS PERWEEK
     Route: 042
     Dates: start: 20120813, end: 20120924
  2. ALIMTA [Suspect]
     Indication: NON-SMALL CELL LUNG CANCER STAGE III
     Dosage: 13AUG12-24SEP2012:500MG/M2?31OCT2012-17DEC2012
     Route: 042
     Dates: start: 20120813, end: 20121217
  3. FOLIC ACID [Concomitant]
  4. BISOPROLOL FUMARATE [Concomitant]

REACTIONS (1)
  - Haemoptysis [Recovered/Resolved]
